FAERS Safety Report 9049958 (Version 1)
Quarter: 2013Q1

REPORT INFORMATION
  Report Type: Spontaneous
  Country: BR (occurrence: BR)
  Receive Date: 20130205
  Receipt Date: 20130205
  Transmission Date: 20140127
  Serious: Yes (Hospitalization)
  Sender: FDA-Public Use
  Company Number: BR-AMGEN-BRASP2013007735

PATIENT
  Age: 48 Year
  Sex: Female
  Weight: 51 kg

DRUGS (3)
  1. ENBREL [Suspect]
     Indication: PSORIATIC ARTHROPATHY
     Dosage: 25 MG, 2X/WEEK
     Dates: start: 20070629
  2. METHOTREXATE [Concomitant]
     Dosage: 2 TABLETS OR CAPSULES OF STRENGTH 5 MG (10 MG) WEEKLY
  3. AMITRIL [Concomitant]
     Dosage: 1 CAPSULE OR TABLET OF STRENGTH 25 MG DAILY

REACTIONS (2)
  - Nephrolithiasis [Unknown]
  - Thirst [Unknown]
